FAERS Safety Report 18039194 (Version 1)
Quarter: 2020Q3

REPORT INFORMATION
  Report Type: Spontaneous
  Country: US (occurrence: US)
  Receive Date: 20200717
  Receipt Date: 20200717
  Transmission Date: 20201103
  Serious: No
  Sender: FDA-Public Use
  Company Number: US-PFIZER INC-2020269957

PATIENT
  Age: 68 Year
  Sex: Female
  Weight: 46.27 kg

DRUGS (1)
  1. DILANTIN [Suspect]
     Active Substance: PHENYTOIN
     Indication: SEIZURE
     Dosage: 300 MG, 3X/DAY

REACTIONS (2)
  - Weight decreased [Unknown]
  - Overdose [Unknown]
